FAERS Safety Report 17134513 (Version 2)
Quarter: 2019Q4

REPORT INFORMATION
  Report Type: Spontaneous
  Country: ES (occurrence: ES)
  Receive Date: 20191210
  Receipt Date: 20191220
  Transmission Date: 20200122
  Serious: Yes (Other)
  Sender: FDA-Public Use
  Company Number: ES-MYLANLABS-2019M1120157

PATIENT
  Age: 2 Year
  Sex: Female
  Weight: 10.4 kg

DRUGS (4)
  1. HIDROCLOROTIAZIDA [Concomitant]
     Active Substance: HYDROCHLOROTHIAZIDE
     Indication: BARTTER^S SYNDROME
     Dosage: UNK
  2. MINOXIDIL. [Suspect]
     Active Substance: MINOXIDIL
     Indication: PRODUCT USED FOR UNKNOWN INDICATION
     Dosage: UNK
     Route: 048
     Dates: start: 20190311, end: 20190718
  3. INDOMETACINA                       /00003801/ [Concomitant]
     Active Substance: INDOMETHACIN
     Indication: BARTTER^S SYNDROME
     Dosage: UNK
  4. OMEPRAZOLE. [Suspect]
     Active Substance: OMEPRAZOLE
     Indication: PROPHYLAXIS AGAINST GASTROINTESTINAL ULCER
     Dosage: 5 ML AL DIA (10 MG, QD)
     Route: 048
     Dates: start: 20190311, end: 20190718

REACTIONS (2)
  - Product formulation issue [Recovered/Resolved]
  - Hypertrichosis [Unknown]

NARRATIVE: CASE EVENT DATE: 20190311
